FAERS Safety Report 7266279-6 (Version None)
Quarter: 2011Q1

REPORT INFORMATION
  Report Type: 
  Country: None (occurrence: None)
  Receive Date: 20110119
  Receipt Date: 20110111
  Transmission Date: 20110831
  Serious: Yes (Hospitalization, Other)
  Sender: FDA-Public Use
  Company Number: 2009SP020292

PATIENT
  Age: 29 Year
  Sex: Female
  Weight: 72.5755 kg

DRUGS (1)
  1. NUVARING [Suspect]
     Indication: CONTRACEPTION
     Dates: start: 20060322, end: 20070224

REACTIONS (23)
  - HYPOTENSION [None]
  - CATHETER SITE SWELLING [None]
  - HAEMATOMA [None]
  - RETROPERITONEAL HAEMORRHAGE [None]
  - MUSCULOSKELETAL DISORDER [None]
  - MEDICAL DEVICE COMPLICATION [None]
  - DEEP VEIN THROMBOSIS [None]
  - PULMONARY EMBOLISM [None]
  - RETROPERITONEAL HAEMATOMA [None]
  - HEPARIN-INDUCED THROMBOCYTOPENIA [None]
  - NEPHROLITHIASIS [None]
  - SUPRAVENTRICULAR TACHYCARDIA [None]
  - ECCHYMOSIS [None]
  - HAEMOGLOBIN DECREASED [None]
  - PLATELET COUNT DECREASED [None]
  - RIGHT VENTRICULAR FAILURE [None]
  - PREGNANCY [None]
  - SINUS TACHYCARDIA [None]
  - ATELECTASIS [None]
  - CATHETER SITE HAEMORRHAGE [None]
  - HAEMATOCRIT DECREASED [None]
  - CARDIOGENIC SHOCK [None]
  - ANXIETY [None]
